FAERS Safety Report 12600524 (Version 1)
Quarter: 2016Q3

REPORT INFORMATION
  Report Type: Spontaneous
  Country: US (occurrence: US)
  Receive Date: 20160727
  Receipt Date: 20160727
  Transmission Date: 20161109
  Serious: No
  Sender: FDA-Public Use
  Company Number: US-AKRIMAX-TIR-2016-0580

PATIENT
  Sex: Female

DRUGS (4)
  1. TIROSINT [Suspect]
     Active Substance: LEVOTHYROXINE SODIUM
     Indication: HYPOTHYROIDISM
     Dosage: 100MCG DAILY MONDAY THROUGH SATURDAY AND 50MCG ON SUNDAY
     Route: 048
  2. TIROSINT [Suspect]
     Active Substance: LEVOTHYROXINE SODIUM
     Indication: HYPOTHYROIDISM
     Dosage: ONCE DAILY
     Route: 048
     Dates: start: 201509
  3. COMPOUNDED T3 [Concomitant]
     Indication: PRODUCT USED FOR UNKNOWN INDICATION
     Dosage: ONCE DAILY APPROXIMATELY FOUR TO FIVE HOURS AFTER DOSE OF TIROSINT
     Dates: start: 20160513
  4. TIROSINT [Suspect]
     Active Substance: LEVOTHYROXINE SODIUM
     Indication: HYPOTHYROIDISM
     Dosage: 100MCG DAILY MONDAY THROUGH SATURDAY AND 50MCG ON SUNDAY
     Route: 048

REACTIONS (5)
  - Palpitations [Unknown]
  - Tri-iodothyronine abnormal [Unknown]
  - Drug level above therapeutic [Unknown]
  - Mobility decreased [Unknown]
  - Malaise [Unknown]
